FAERS Safety Report 8363646-4 (Version None)
Quarter: 2012Q2

REPORT INFORMATION
  Report Type: 
  Country: None (occurrence: None)
  Receive Date: 20120516
  Receipt Date: 20120511
  Transmission Date: 20120825
  Serious: Yes (Death)
  Sender: FDA-Public Use
  Company Number: GB-SANOFI-AVENTIS-2012SA033891

PATIENT
  Age: 60 Year
  Sex: Male

DRUGS (5)
  1. OXYCONTIN [Concomitant]
     Indication: PAIN
     Route: 048
     Dates: start: 20050101, end: 20091012
  2. ORAMORPH SR [Concomitant]
     Indication: PAIN
     Route: 048
     Dates: start: 20050101, end: 20091012
  3. TAXOTERE [Suspect]
     Indication: PROSTATE CANCER METASTATIC
     Route: 042
     Dates: start: 20090817, end: 20091009
  4. DEXAMETHASONE [Concomitant]
     Indication: CHEMOTHERAPY
     Route: 048
     Dates: start: 20090817, end: 20091009
  5. PREDNISOLONE [Concomitant]
     Indication: CHEMOTHERAPY
     Route: 048
     Dates: start: 20090817, end: 20091009

REACTIONS (1)
  - PROSTATIC SPECIFIC ANTIGEN INCREASED [None]
